FAERS Safety Report 6701265-3 (Version None)
Quarter: 2010Q2

REPORT INFORMATION
  Report Type: 
  Country: None (occurrence: None)
  Receive Date: 20100428
  Receipt Date: 20100420
  Transmission Date: 20101027
  Serious: Yes (Hospitalization)
  Sender: FDA-Public Use
  Company Number: IN-ALLERGAN-1005255US

PATIENT
  Age: 19 Year
  Sex: Female

DRUGS (2)
  1. PREDNISOLONE ACETATE OPHTHALMIC SUSPENSION [Suspect]
     Indication: POSTOPERATIVE CARE
     Dosage: UNK
     Route: 047
  2. VIGAMOX [Suspect]
     Indication: POSTOPERATIVE CARE
     Dosage: UNK
     Route: 047

REACTIONS (1)
  - KERATITIS BACTERIAL [None]
